FAERS Safety Report 5638219-4 (Version None)
Quarter: 2008Q1

REPORT INFORMATION
  Report Type: 
  Country: None (occurrence: None)
  Receive Date: 20080226
  Receipt Date: 20080221
  Transmission Date: 20080703
  Serious: Yes (Hospitalization)
  Sender: FDA-Public Use
  Company Number: JP-BRISTOL-MYERS SQUIBB COMPANY-13915814

PATIENT
  Age: 59 Year
  Sex: Male

DRUGS (6)
  1. TAXOL [Suspect]
     Indication: NON-SMALL CELL LUNG CANCER
     Dosage: 339 MG/BODY EVERY 3 WEEKS .
     Route: 041
     Dates: start: 20070702, end: 20071016
  2. PARAPLATIN [Suspect]
     Indication: NON-SMALL CELL LUNG CANCER
     Route: 041
     Dates: start: 20070702, end: 20071016
  3. AVASTIN [Suspect]
     Indication: NON-SMALL CELL LUNG CANCER
     Route: 041
     Dates: start: 20070702, end: 20071127
  4. LOXONIN [Concomitant]
     Route: 048
     Dates: start: 20070704
  5. ISODINE [Concomitant]
     Route: 049
     Dates: start: 20070719, end: 20071107
  6. BUTENAFINE [Concomitant]
     Route: 061
     Dates: start: 20070724

REACTIONS (1)
  - NEUTROPENIA [None]
